FAERS Safety Report 24890846 (Version 4)
Quarter: 2025Q1

REPORT INFORMATION
  Report Type: Spontaneous
  Country: US (occurrence: US)
  Receive Date: 20250127
  Receipt Date: 20250314
  Transmission Date: 20250409
  Serious: No
  Sender: PFIZER
  Company Number: US-PFIZER INC-PV202500009887

PATIENT
  Age: 16 Year
  Sex: Male
  Weight: 71.4 kg

DRUGS (5)
  1. GENOTROPIN [Suspect]
     Active Substance: SOMATROPIN
     Indication: Hypopituitarism
     Route: 058
  2. GENOTROPIN [Suspect]
     Active Substance: SOMATROPIN
     Indication: Growth hormone deficiency
     Route: 058
  3. GENOTROPIN [Suspect]
     Active Substance: SOMATROPIN
     Route: 058
  4. GENOTROPIN [Suspect]
     Active Substance: SOMATROPIN
     Dosage: 1.5 MG (ALTERNATE 1.4 MG WITH 1.6 MG) SQ 6X/WK
  5. GENOTROPIN [Suspect]
     Active Substance: SOMATROPIN
     Dosage: 1.5 MG (ALTERNATE 1.4 MG WITH 1.6 MG) SQ 6X/WK

REACTIONS (1)
  - Insulin-like growth factor increased [Unknown]
